FAERS Safety Report 4280997-3 (Version None)
Quarter: 2004Q1

REPORT INFORMATION
  Report Type: 
  Country: None (occurrence: None)
  Receive Date: 20040128
  Receipt Date: 20040128
  Transmission Date: 20041129
  Serious: Yes (Life-Threatening, Disabling)
  Sender: FDA-Public Use
  Company Number: None

PATIENT
  Age: 49 Year
  Sex: Male
  Weight: 61.2356 kg

DRUGS (2)
  1. CORDIS-CYPHER VX CORONARY STENT [Suspect]
  2. HEPARIN [Suspect]

REACTIONS (3)
  - DRUG WITHDRAWAL SYNDROME [None]
  - MYOCARDIAL INFARCTION [None]
  - STENT OCCLUSION [None]
